FAERS Safety Report 7225153-1 (Version None)
Quarter: 2011Q1

REPORT INFORMATION
  Report Type: 
  Country: None (occurrence: None)
  Receive Date: 20110113
  Receipt Date: 20110111
  Transmission Date: 20110831
  Serious: Yes (Hospitalization)
  Sender: FDA-Public Use
  Company Number: A0904978A

PATIENT
  Age: 50 Year
  Sex: Female

DRUGS (5)
  1. PREDNISONE [Concomitant]
  2. IMITREX TABLETS [Concomitant]
  3. VIVELLE [Suspect]
     Dosage: .5MG TWO TIMES PER WEEK
     Route: 062
     Dates: start: 20070101
  4. TOPAMAX [Concomitant]
  5. WELLBUTRIN SR [Suspect]
     Indication: DEPRESSION
     Dosage: 150MG TWICE PER DAY
     Route: 048
     Dates: start: 20090601

REACTIONS (3)
  - DYSPNOEA [None]
  - MYOCARDIAL INFARCTION [None]
  - STENT PLACEMENT [None]
